FAERS Safety Report 12266784 (Version 3)
Quarter: 2016Q3

REPORT INFORMATION
  Report Type: Spontaneous
  Country: US (occurrence: US)
  Receive Date: 20160414
  Receipt Date: 20160727
  Transmission Date: 20161109
  Serious: No
  Sender: FDA-Public Use
  Company Number: US-BIOGEN-2016BI00219892

PATIENT
  Age: 28 Year
  Sex: Female

DRUGS (1)
  1. TYSABRI [Suspect]
     Active Substance: NATALIZUMAB
     Indication: MULTIPLE SCLEROSIS
     Route: 042
     Dates: start: 20150814

REACTIONS (4)
  - Malaise [Unknown]
  - Prescribed underdose [Not Recovered/Not Resolved]
  - Cognitive disorder [Unknown]
  - Pain [Unknown]

NARRATIVE: CASE EVENT DATE: 201601
